FAERS Safety Report 7725232-6 (Version None)
Quarter: 2011Q3

REPORT INFORMATION
  Report Type: 
  Country: None (occurrence: None)
  Receive Date: 20110902
  Receipt Date: 20110822
  Transmission Date: 20111222
  Serious: Yes (Other)
  Sender: FDA-Public Use
  Company Number: JP-BRISTOL-MYERS SQUIBB COMPANY-16017592

PATIENT
  Age: 6 Decade
  Sex: Female

DRUGS (10)
  1. ABILIFY [Suspect]
     Indication: SCHIZOPHRENIA
     Dosage: ABILIFY ORAL SOLUTION 0.1 PERCENT DOSE INCREASED TO 24MG/D
     Route: 048
  2. ZONISAMIDE [Concomitant]
  3. TIAPRIDE HCL [Concomitant]
  4. FLUNITRAZEPAM [Concomitant]
  5. LAMOTRIGINE [Concomitant]
  6. VALPROATE SODIUM [Concomitant]
  7. QUETIAPINE FUMARATE [Concomitant]
  8. DIPHENHYDRAMINE HCL [Concomitant]
  9. NITRAZEPAM [Concomitant]
  10. LEVOMEPROMAZINE MALEATE [Concomitant]

REACTIONS (3)
  - ABNORMAL BEHAVIOUR [None]
  - POLYDIPSIA [None]
  - THIRST [None]
